FAERS Safety Report 23142456 (Version 1)
Quarter: 2023Q4

REPORT INFORMATION
  Report Type: Spontaneous
  Country: BG (occurrence: BG)
  Receive Date: 20231103
  Receipt Date: 20231103
  Transmission Date: 20240110
  Serious: Yes (Hospitalization)
  Sender: FDA-Public Use
  Company Number: BG-STRIDES ARCOLAB LIMITED-2023SP016289

PATIENT
  Age: 56 Year
  Sex: Male

DRUGS (2)
  1. LOSARTAN [Suspect]
     Active Substance: LOSARTAN
     Indication: Hypertension
     Dosage: 50 MILLIGRAM, QD
     Route: 065
  2. FELODIPINE [Concomitant]
     Active Substance: FELODIPINE
     Indication: Hypertension
     Dosage: 2.5 MILLIGRAM, PER DAY
     Route: 065

REACTIONS (1)
  - Basal cell carcinoma [Unknown]
